FAERS Safety Report 9000940 (Version 1)
Quarter: 2012Q4

REPORT INFORMATION
  Report Type: Spontaneous
  Country: GB (occurrence: None)
  Receive Date: 20121226
  Receipt Date: 20121226
  Transmission Date: 20130627
  Serious: Yes (Disabling)
  Sender: FDA-Public Use
  Company Number: AUR-APL-2012-05399

PATIENT
  Age: 29 Year
  Sex: Male
  Weight: 70 kg

DRUGS (1)
  1. PAROXETINE (PAROXETINE) [Suspect]
     Indication: DEPRESSION
     Route: 048
     Dates: start: 20080223, end: 20121119

REACTIONS (10)
  - Lethargy [None]
  - Tremor [None]
  - Muscle spasms [None]
  - Constipation [None]
  - Influenza like illness [None]
  - Pruritus [None]
  - Dizziness [None]
  - Anxiety [None]
  - Agitation [None]
  - Insomnia [None]
